FAERS Safety Report 21056783 (Version 1)
Quarter: 2022Q3

REPORT INFORMATION
  Report Type: Spontaneous
  Country: GB (occurrence: GB)
  Receive Date: 20220708
  Receipt Date: 20220708
  Transmission Date: 20221026
  Serious: No
  Sender: FDA-Public Use
  Company Number: None

PATIENT

DRUGS (3)
  1. IBUPROFEN [Suspect]
     Active Substance: IBUPROFEN
     Indication: Ill-defined disorder
     Dosage: UNK
     Route: 065
     Dates: start: 20220310
  2. CHLORPHENIRAMINE MALEATE [Concomitant]
     Active Substance: CHLORPHENIRAMINE MALEATE
     Indication: Ill-defined disorder
     Dosage: 2.5 MILLILITER, BID (2.5 ML TWICE DAILY WHEN REQUIRED)
     Route: 065
     Dates: start: 20220310
  3. NYSTATIN [Concomitant]
     Active Substance: NYSTATIN
     Indication: Ill-defined disorder
     Dosage: 1 MILLILITER, QID (1ML 4 TIMES/DAY)
     Route: 065
     Dates: start: 20220310

REACTIONS (1)
  - Rash erythematous [Recovered/Resolved]

NARRATIVE: CASE EVENT DATE: 20220316
